FAERS Safety Report 9255946 (Version 2)
Quarter: 2013Q3

REPORT INFORMATION
  Report Type: Spontaneous
  Country: US (occurrence: US)
  Receive Date: 20130425
  Receipt Date: 20130725
  Transmission Date: 20140515
  Serious: Yes (Other)
  Sender: FDA-Public Use
  Company Number: CHPA2013US006917

PATIENT
  Sex: Female

DRUGS (4)
  1. VOLTAREN GEL [Suspect]
     Indication: PLANTAR FASCIITIS
     Dosage: 2 G, QD
     Route: 061
     Dates: start: 201103, end: 2011
  2. VOLTAREN GEL [Suspect]
     Dosage: UNK, UNK
  3. CARVEDILOL [Suspect]
     Dosage: 3.125 MG, UNK
     Dates: start: 2011
  4. RAMIPRIL [Suspect]
     Indication: HYPERTENSION
     Dosage: 5 MG, UNK

REACTIONS (10)
  - Cataract [Not Recovered/Not Resolved]
  - Peripheral arterial occlusive disease [Not Recovered/Not Resolved]
  - Local swelling [Not Recovered/Not Resolved]
  - Venous insufficiency [Not Recovered/Not Resolved]
  - Dyspnoea [Recovered/Resolved]
  - Vomiting [Recovered/Resolved]
  - Malaise [Recovered/Resolved]
  - Dizziness [Recovered/Resolved]
  - Drug ineffective for unapproved indication [Unknown]
  - Rash [Not Recovered/Not Resolved]
